FAERS Safety Report 23588285 (Version 1)
Quarter: 2024Q1

REPORT INFORMATION
  Report Type: Spontaneous
  Country: CN (occurrence: CN)
  Receive Date: 20240302
  Receipt Date: 20240302
  Transmission Date: 20240410
  Serious: Yes (Other)
  Sender: FDA-Public Use
  Company Number: CN-MACLEODS PHARMACEUTICALS US LTD-MAC2024046105

PATIENT

DRUGS (4)
  1. LIDOCAINE [Suspect]
     Active Substance: LIDOCAINE
     Indication: Anaesthesia
     Dosage: 2 % (COTTON PLEDGET)
     Route: 065
  2. PROPOFOL [Concomitant]
     Active Substance: PROPOFOL
     Indication: Product used for unknown indication
     Dosage: UNK (0.2 TO 0.5 MG/ML)
     Route: 065
  3. REMIFENTANIL [Concomitant]
     Active Substance: REMIFENTANIL
     Indication: Product used for unknown indication
     Dosage: UNK (0.2 TO 0.5 NG/ML)
     Route: 065
  4. CARBAMAZEPINE [Concomitant]
     Active Substance: CARBAMAZEPINE
     Indication: Generalised tonic-clonic seizure
     Dosage: 200 MILLIGRAM, BID
     Route: 065

REACTIONS (4)
  - Pupillary reflex impaired [Recovered/Resolved]
  - Respiratory disorder [Recovered/Resolved]
  - Loss of consciousness [Recovered/Resolved]
  - Apnoea [Recovered/Resolved]
